FAERS Safety Report 12703798 (Version 1)
Quarter: 2016Q3

REPORT INFORMATION
  Report Type: Report from Study
  Country: None (occurrence: FR)
  Receive Date: 20160831
  Receipt Date: 20160831
  Transmission Date: 20161109
  Serious: Yes (Congenital Anomaly, Other)
  Sender: FDA-Public Use
  Company Number: FR-TELIGENT, INC-IGIL20160256

PATIENT
  Sex: 0

DRUGS (10)
  1. DOMPERIDONE [Suspect]
     Active Substance: DOMPERIDONE
     Indication: PRODUCT USED FOR UNKNOWN INDICATION
     Route: 063
  2. RANITIDINE HYDROCHLORIDE. [Suspect]
     Active Substance: RANITIDINE HYDROCHLORIDE
     Route: 064
  3. DOMPERIDONE [Suspect]
     Active Substance: DOMPERIDONE
     Route: 064
  4. METOPIMAZINE [Suspect]
     Active Substance: METOPIMAZINE
     Indication: PRODUCT USED FOR UNKNOWN INDICATION
     Route: 063
  5. OXOMEMAZINE [Suspect]
     Active Substance: OXOMEMAZINE
     Indication: PRODUCT USED FOR UNKNOWN INDICATION
     Route: 063
  6. RANITIDINE HYDROCHLORIDE. [Suspect]
     Active Substance: RANITIDINE HYDROCHLORIDE
     Indication: PRODUCT USED FOR UNKNOWN INDICATION
     Route: 063
  7. CETIRIZINE [Suspect]
     Active Substance: CETIRIZINE HYDROCHLORIDE
     Route: 064
  8. OXOMEMAZINE [Suspect]
     Active Substance: OXOMEMAZINE
     Route: 064
  9. CETIRIZINE [Suspect]
     Active Substance: CETIRIZINE HYDROCHLORIDE
     Indication: PRODUCT USED FOR UNKNOWN INDICATION
     Route: 063
  10. METOPIMAZINE [Suspect]
     Active Substance: METOPIMAZINE
     Route: 064

REACTIONS (7)
  - Congenital anomaly [Unknown]
  - Premature baby [Unknown]
  - Apgar score low [Unknown]
  - Pathology test [Unknown]
  - Exposure during breast feeding [Unknown]
  - Psychomotor skills impaired [Unknown]
  - Cognitive disorder [Unknown]
